FAERS Safety Report 5307880-6 (Version None)
Quarter: 2007Q2

REPORT INFORMATION
  Report Type: 
  Country: None (occurrence: None)
  Receive Date: 20070420
  Receipt Date: 20070412
  Transmission Date: 20071010
  Serious: Yes (Hospitalization)
  Sender: FDA-Public Use
  Company Number: 155176USA

PATIENT
  Age: 46 Year
  Sex: Male

DRUGS (1)
  1. DOXYCYCLINE HYCLATE [Suspect]
     Indication: ORAL INFECTION
     Dosage: 200 MG (100 MG, 2 IN 1 D), ORAL
     Route: 048

REACTIONS (5)
  - ARTHRALGIA [None]
  - EPIDERMAL NECROSIS [None]
  - ORAL INTAKE REDUCED [None]
  - POST INFLAMMATORY PIGMENTATION CHANGE [None]
  - STEVENS-JOHNSON SYNDROME [None]
